FAERS Safety Report 7455051-X (Version None)
Quarter: 2011Q2

REPORT INFORMATION
  Report Type: 
  Country: None (occurrence: None)
  Receive Date: 20110503
  Receipt Date: 20110428
  Transmission Date: 20111010
  Serious: Yes (Hospitalization, Other)
  Sender: FDA-Public Use
  Company Number: CR-BAYER-2011-029849

PATIENT
  Age: 32 Year
  Sex: Female

DRUGS (3)
  1. AZATHIOPRINE [Concomitant]
  2. ACETAMINOPHEN [Concomitant]
  3. BETAFERON [Suspect]
     Indication: MULTIPLE SCLEROSIS

REACTIONS (2)
  - GAIT DISTURBANCE [None]
  - UNEVALUABLE EVENT [None]
